FAERS Safety Report 7908118-3 (Version None)
Quarter: 2011Q4

REPORT INFORMATION
  Report Type: 
  Country: None (occurrence: None)
  Receive Date: 20111111
  Receipt Date: 20111108
  Transmission Date: 20120403
  Serious: No
  Sender: FDA-Public Use
  Company Number: US-BIOGENIDEC-2010BI017123

PATIENT
  Sex: Female

DRUGS (2)
  1. TYSABRI [Suspect]
     Indication: MULTIPLE SCLEROSIS
     Route: 042
     Dates: start: 20071214
  2. KLONOPIN [Concomitant]
     Indication: ANXIETY

REACTIONS (8)
  - HYPOAESTHESIA [None]
  - NYSTAGMUS [None]
  - MULTIPLE SCLEROSIS [None]
  - PARAESTHESIA [None]
  - CENTRAL NERVOUS SYSTEM LESION [None]
  - VISUAL IMPAIRMENT [None]
  - CONFUSIONAL STATE [None]
  - DIZZINESS [None]
